FAERS Safety Report 4676891-6 (Version None)
Quarter: 2005Q2

REPORT INFORMATION
  Report Type: 
  Country: None (occurrence: None)
  Receive Date: 20050527
  Receipt Date: 20050513
  Transmission Date: 20051028
  Serious: Yes (Death)
  Sender: FDA-Public Use
  Company Number: Q05-016

PATIENT
  Age: 65 Year
  Sex: Male
  Weight: 57.6068 kg

DRUGS (1)
  1. QUADRAMET [Suspect]
     Indication: PROSTATE CANCER
     Dosage: 54.7MCI/KG
     Dates: start: 20050310

REACTIONS (1)
  - DISEASE PROGRESSION [None]
